FAERS Safety Report 5416974-6 (Version None)
Quarter: 2007Q3

REPORT INFORMATION
  Report Type: 
  Country: None (occurrence: None)
  Receive Date: 20070816
  Receipt Date: 20070808
  Transmission Date: 20080115
  Serious: Yes (Other)
  Sender: FDA-Public Use
  Company Number: US-PFIZER INC-2007067460

PATIENT
  Sex: Male
  Weight: 106.6 kg

DRUGS (9)
  1. CHANTIX [Suspect]
     Indication: SMOKING CESSATION THERAPY
     Dates: start: 20070701, end: 20070701
  2. HYDROXYZINE [Suspect]
     Indication: PRURITUS
     Dates: start: 20070101, end: 20070101
  3. HYDROCODONE BITARTRATE + ACETAMINOPHEN [Concomitant]
  4. VENLAFAXINE HCL [Concomitant]
  5. SEROQUEL [Concomitant]
  6. HYDROCHLOROTHIAZIDE [Concomitant]
  7. AMLODIPINE [Concomitant]
  8. CYCLOBENZAPRINE HCL [Concomitant]
  9. ZOLPIDEM TARTRATE [Concomitant]

REACTIONS (2)
  - PRURITUS [None]
  - RASH MACULAR [None]
